FAERS Safety Report 9329782 (Version 1)
Quarter: 2013Q2

REPORT INFORMATION
  Report Type: Spontaneous
  Country: US (occurrence: US)
  Receive Date: 20130604
  Receipt Date: 20130604
  Transmission Date: 20140414
  Serious: No
  Sender: FDA-Public Use
  Company Number: US-SANOFI-AVENTIS-2013SA002521

PATIENT
  Age: 57 Year
  Sex: Female

DRUGS (7)
  1. LANTUS SOLOSTAR [Suspect]
     Indication: TYPE 2 DIABETES MELLITUS
     Dosage: DOSE:10 UNIT(S)
     Route: 051
     Dates: start: 201212
  2. LANTUS SOLOSTAR [Suspect]
     Indication: TYPE 2 DIABETES MELLITUS
     Dosage: TO INCREASE THE DOSE BY 2 UNITS DAILY.
     Route: 051
  3. SOLOSTAR [Suspect]
     Indication: TYPE 2 DIABETES MELLITUS
  4. LISINOPRIL [Concomitant]
  5. JANUVIA [Concomitant]
  6. LIPITOR /UNK/ [Concomitant]
  7. DICLOFENAC [Concomitant]

REACTIONS (10)
  - Blood glucose increased [Unknown]
  - Injection site haemorrhage [Unknown]
  - Vision blurred [Unknown]
  - Overweight [Unknown]
  - Sinus disorder [Unknown]
  - Nasal congestion [Unknown]
  - Sputum retention [Unknown]
  - Nasal congestion [Unknown]
  - Headache [Unknown]
  - Asthenia [Unknown]
